FAERS Safety Report 7959891-X (Version None)
Quarter: 2011Q4

REPORT INFORMATION
  Report Type: 
  Country: None (occurrence: None)
  Receive Date: 20111206
  Receipt Date: 20111201
  Transmission Date: 20120403
  Serious: Yes (Death, Other)
  Sender: FDA-Public Use
  Company Number: PHHY2011MX105621

PATIENT

DRUGS (1)
  1. AMOXICILLIN [Suspect]

REACTIONS (2)
  - DEATH [None]
  - HAEMORRHAGE [None]
